FAERS Safety Report 25960761 (Version 2)
Quarter: 2025Q4

REPORT INFORMATION
  Report Type: Spontaneous
  Country: US (occurrence: None)
  Receive Date: 20251027
  Receipt Date: 20251110
  Transmission Date: 20260118
  Serious: Yes (Hospitalization, Other)
  Sender: ENDO
  Company Number: US-ENDO USA, INC.-2025-002172

PATIENT
  Age: 52 Year
  Sex: Male

DRUGS (2)
  1. AVEED [Suspect]
     Active Substance: TESTOSTERONE UNDECANOATE
     Indication: Libido decreased
     Dosage: UNK UNKNOWN, UNKNOWN
  2. UNSPECIFIED INGREDIENT [Suspect]
     Active Substance: UNSPECIFIED INGREDIENT
     Indication: Antioestrogen therapy
     Dosage: UNK UNKNOWN, UNKNOWN (2 WEEKS PRIOR TO PRESENTATION)
     Route: 065

REACTIONS (3)
  - Sigmoid sinus thrombosis [Recovered/Resolved]
  - Transverse sinus thrombosis [Recovered/Resolved]
  - Ear infection [Recovered/Resolved]
